FAERS Safety Report 4614063-1 (Version None)
Quarter: 2005Q1

REPORT INFORMATION
  Report Type: 
  Country: None (occurrence: None)
  Receive Date: 20050321
  Receipt Date: 20050308
  Transmission Date: 20050727
  Serious: Yes (Hospitalization)
  Sender: FDA-Public Use
  Company Number: CA-BRISTOL-MYERS SQUIBB COMPANY-12904082

PATIENT
  Age: 79 Year
  Sex: Male

DRUGS (9)
  1. AVAPRO [Suspect]
     Route: 048
     Dates: start: 20040601, end: 20041222
  2. METFORMIN HCL [Concomitant]
  3. VASOTEC [Concomitant]
  4. LASIX [Concomitant]
  5. GLYBURIDE [Concomitant]
  6. PAXIL [Concomitant]
  7. RANITIDINE [Concomitant]
  8. SIMVASTATIN [Concomitant]
  9. ASPIRIN [Concomitant]

REACTIONS (5)
  - ATRIAL FLUTTER [None]
  - BLOOD GLUCOSE DECREASED [None]
  - HYPERKALAEMIA [None]
  - PERICARDITIS [None]
  - RENAL FAILURE CHRONIC [None]
